FAERS Safety Report 8307519-1 (Version None)
Quarter: 2012Q2

REPORT INFORMATION
  Report Type: 
  Country: None (occurrence: None)
  Receive Date: 20120424
  Receipt Date: 20120417
  Transmission Date: 20120825
  Serious: Yes (Other)
  Sender: FDA-Public Use
  Company Number: US-US-EMD SERONO, INC.-7120136

PATIENT
  Sex: Female

DRUGS (4)
  1. REBIF [Suspect]
     Dates: start: 20120301
  2. REBIF [Suspect]
     Indication: MULTIPLE SCLEROSIS
     Dates: start: 20080828, end: 20111202
  3. AMLODIPINE [Concomitant]
     Indication: HYPERTENSION
  4. UNSPECIFIED MEDICATIONS [Concomitant]
     Indication: PRODUCT USED FOR UNKNOWN INDICATION

REACTIONS (5)
  - METASTASES TO LYMPH NODES [None]
  - VISION BLURRED [None]
  - TONSIL CANCER [None]
  - URINARY TRACT INFECTION [None]
  - DIZZINESS [None]
